FAERS Safety Report 9187974 (Version 1)
Quarter: 2013Q1

REPORT INFORMATION
  Report Type: Spontaneous
  Country: IT (occurrence: IT)
  Receive Date: 20130325
  Receipt Date: 20130325
  Transmission Date: 20140127
  Serious: Yes (Other)
  Sender: FDA-Public Use
  Company Number: IT-MYLANLABS-2013S1005831

PATIENT
  Age: 73 Year
  Sex: Female

DRUGS (4)
  1. CARVEDILOL [Suspect]
     Indication: MYOCARDIAL ISCHAEMIA
     Route: 048
     Dates: start: 20121001, end: 20130224
  2. CARVEDILOL [Suspect]
     Indication: MYOCARDIAL ISCHAEMIA
  3. SINTROM [Concomitant]
     Indication: PRODUCT USED FOR UNKNOWN INDICATION
  4. SIMVASTATIN [Concomitant]
     Indication: PRODUCT USED FOR UNKNOWN INDICATION

REACTIONS (3)
  - Sinus bradycardia [Unknown]
  - Vertigo [Unknown]
  - Vomiting [Unknown]
